FAERS Safety Report 15472660 (Version 1)
Quarter: 2018Q4

REPORT INFORMATION
  Report Type: Spontaneous
  Country: US (occurrence: US)
  Receive Date: 20181008
  Receipt Date: 20181008
  Transmission Date: 20190205
  Serious: Yes (Other)
  Sender: FDA-Public Use
  Company Number: US-AMGEN-USASP2018136878

PATIENT
  Age: 74 Year
  Sex: Female

DRUGS (3)
  1. CALCIUM [Concomitant]
     Active Substance: CALCIUM
  2. ENALAPRIL [Concomitant]
     Active Substance: ENALAPRIL
     Indication: BLOOD PRESSURE ABNORMAL
  3. PROLIA [Suspect]
     Active Substance: DENOSUMAB
     Indication: OSTEOPOROSIS POSTMENOPAUSAL
     Dosage: UNK
     Route: 065
     Dates: start: 201801

REACTIONS (9)
  - Insomnia [Recovering/Resolving]
  - Muscle spasms [Recovering/Resolving]
  - Neutropenia [Unknown]
  - Immune system disorder [Unknown]
  - Blood cholesterol abnormal [Unknown]
  - Arthralgia [Recovering/Resolving]
  - White blood cell disorder [Unknown]
  - Pain [Recovering/Resolving]
  - Headache [Recovering/Resolving]

NARRATIVE: CASE EVENT DATE: 2018
